FAERS Safety Report 4361495-5 (Version None)
Quarter: 2004Q2

REPORT INFORMATION
  Report Type: 
  Country: None (occurrence: None)
  Receive Date: 20040521
  Receipt Date: 20031001
  Transmission Date: 20050107
  Serious: No
  Sender: FDA-Public Use
  Company Number: US-GLAXOSMITHKLINE-A0428257A

PATIENT
  Age: 66 Year
  Sex: Male

DRUGS (2)
  1. ZYBAN [Suspect]
     Route: 048
  2. CHEMOTHERAPY [Concomitant]

REACTIONS (1)
  - INSOMNIA [None]
